FAERS Safety Report 5017903-X (Version None)
Quarter: 2006Q2

REPORT INFORMATION
  Report Type: 
  Country: None (occurrence: None)
  Receive Date: 20060602
  Receipt Date: 20060602
  Transmission Date: 20061013
  Serious: Yes (Other)
  Sender: FDA-Public Use
  Company Number: None

PATIENT
  Age: 64 Year
  Sex: Female
  Weight: 53.5244 kg

DRUGS (1)
  1. FLUORESCEIN SODIUM [Suspect]
     Indication: GLAUCOMA
     Dosage: SOME DROPS   4 DAYS TWICE A DAY
     Dates: start: 20050124, end: 20050127

REACTIONS (2)
  - PHOTOPSIA [None]
  - VITREOUS FLOATERS [None]
